FAERS Safety Report 23914779 (Version 1)
Quarter: 2024Q2

REPORT INFORMATION
  Report Type: Spontaneous
  Country: US (occurrence: US)
  Receive Date: 20240529
  Receipt Date: 20240529
  Transmission Date: 20240716
  Serious: Yes (Hospitalization)
  Sender: FDA-Public Use
  Company Number: US-BRISTOL-MYERS SQUIBB COMPANY-2024-083978

PATIENT
  Age: 90 Year
  Sex: Female
  Weight: 48.99 kg

DRUGS (1)
  1. REVLIMID [Suspect]
     Active Substance: LENALIDOMIDE
     Indication: Myelodysplastic syndrome
     Dosage: 3WKSON/1WKOFF
     Route: 048
     Dates: start: 20221201

REACTIONS (3)
  - Dehydration [Unknown]
  - Haemoglobin abnormal [Unknown]
  - Off label use [Unknown]
